FAERS Safety Report 5072341-9 (Version None)
Quarter: 2006Q3

REPORT INFORMATION
  Report Type: 
  Country: None (occurrence: None)
  Receive Date: 20060807
  Receipt Date: 20060726
  Transmission Date: 20061208
  Serious: Yes (Hospitalization)
  Sender: FDA-Public Use
  Company Number: FR-JNJFOC-20060705009

PATIENT
  Age: 68 Year
  Sex: Female

DRUGS (6)
  1. OFLOCET [Suspect]
     Indication: PYELONEPHRITIS
     Route: 048
     Dates: start: 20060614, end: 20060703
  2. RIFADIN [Suspect]
     Indication: PYELONEPHRITIS
     Route: 048
     Dates: start: 20060614, end: 20060627
  3. DAFALGAN [Suspect]
     Indication: DRUG USE FOR UNKNOWN INDICATION
     Route: 048
     Dates: start: 20060614
  4. TAREG [Suspect]
     Indication: DRUG USE FOR UNKNOWN INDICATION
     Route: 048
     Dates: start: 20060614
  5. BISOPROLOL FUMARATE [Suspect]
     Indication: DRUG USE FOR UNKNOWN INDICATION
     Route: 048
     Dates: start: 20060614
  6. AMLODIPINE BESYLATE [Suspect]
     Indication: DRUG USE FOR UNKNOWN INDICATION
     Route: 048
     Dates: start: 20060614

REACTIONS (1)
  - CHOLESTASIS [None]
